FAERS Safety Report 22107871 (Version 1)
Quarter: 2023Q1

REPORT INFORMATION
  Report Type: Spontaneous
  Country: EU (occurrence: EU)
  Receive Date: 20230317
  Receipt Date: 20230317
  Transmission Date: 20230418
  Serious: Yes (Hospitalization)
  Sender: FDA-Public Use
  Company Number: None

PATIENT
  Age: 12 Year
  Sex: Male
  Weight: 56 kg

DRUGS (6)
  1. TEPADINA [Suspect]
     Active Substance: THIOTEPA
     Indication: Bone marrow conditioning regimen
     Dosage: IN TOTAL
     Dates: start: 20230214, end: 20230214
  2. LETERMOVIR [Concomitant]
     Active Substance: LETERMOVIR
     Dates: start: 20230217, end: 20230225
  3. CYCLOPHOSPHAMIDE [Suspect]
     Active Substance: CYCLOPHOSPHAMIDE
     Indication: Bone marrow conditioning regimen
     Dosage: ()
     Dates: start: 20230219, end: 20230220
  4. FLUDARABINE PHOSPHATE [Suspect]
     Active Substance: FLUDARABINE PHOSPHATE
     Indication: Bone marrow conditioning regimen
     Dates: start: 20230210, end: 20230213
  5. TREOSULFAN [Suspect]
     Active Substance: TREOSULFAN
     Indication: Bone marrow conditioning regimen
     Dosage: (14G/M2)IN TOTAL
     Dates: start: 20230210, end: 20230212
  6. TEICOPLANIN [Concomitant]
     Active Substance: TEICOPLANIN
     Dates: start: 20230217, end: 20230226

REACTIONS (1)
  - Dermatitis bullous [Recovering/Resolving]

NARRATIVE: CASE EVENT DATE: 20230223
